FAERS Safety Report 13230835 (Version 5)
Quarter: 2017Q3

REPORT INFORMATION
  Report Type: Report from Study
  Country: US (occurrence: US)
  Receive Date: 20170214
  Receipt Date: 20170711
  Transmission Date: 20171127
  Serious: No
  Sender: FDA-Public Use
  Company Number: PHEH2017US004600

PATIENT
  Age: 60 Year
  Sex: Female

DRUGS (2)
  1. COSENTYX [Suspect]
     Active Substance: SECUKINUMAB
     Indication: PSORIASIS
     Dosage: 300 MG, QW
     Route: 058
     Dates: start: 20170118
  2. COSENTYX [Suspect]
     Active Substance: SECUKINUMAB
     Dosage: 300 MG, QMO (EVERY 4 WEEKS)
     Route: 058
     Dates: start: 20170120

REACTIONS (10)
  - Oral mucosal eruption [Unknown]
  - Confusional state [Unknown]
  - Paranasal sinus hypersecretion [Unknown]
  - Headache [Unknown]
  - Gingival swelling [Unknown]
  - Oropharyngeal pain [Unknown]
  - Malaise [Unknown]
  - Nasopharyngitis [Unknown]
  - Seasonal allergy [Not Recovered/Not Resolved]
  - Sinus congestion [Unknown]

NARRATIVE: CASE EVENT DATE: 20170413
